FAERS Safety Report 4980859-X (Version None)
Quarter: 2006Q2

REPORT INFORMATION
  Report Type: 
  Country: None (occurrence: None)
  Receive Date: 20060418
  Receipt Date: 20060405
  Transmission Date: 20061013
  Serious: Yes (Life-Threatening, Disabling, Other)
  Sender: FDA-Public Use
  Company Number: 2006037954

PATIENT
  Sex: Male

DRUGS (2)
  1. DILANTIN [Suspect]
     Indication: CONVULSION
     Dosage: 300 MG (UNKNOWN), UNKNOWN
     Route: 065
     Dates: end: 20060327
  2. LAMICTAL [Suspect]
     Indication: EPILEPSY
     Dosage: 100 MG (50 MG, 2 IN 1 D), ORAL
     Route: 048
     Dates: start: 20060123

REACTIONS (6)
  - ANTICONVULSANT DRUG LEVEL ABOVE THERAPEUTIC [None]
  - CONVULSION [None]
  - DEPRESSION [None]
  - FATIGUE [None]
  - OVERDOSE [None]
  - ROAD TRAFFIC ACCIDENT [None]
